FAERS Safety Report 11753068 (Version 1)
Quarter: 2015Q4

REPORT INFORMATION
  Report Type: Spontaneous
  Country: JP (occurrence: JP)
  Receive Date: 20151119
  Receipt Date: 20151119
  Transmission Date: 20160304
  Serious: Yes (Hospitalization)
  Sender: FDA-Public Use
  Company Number: JP-TAKEDA-2015TJP018652

PATIENT
  Age: 95 Year
  Sex: Female
  Weight: 37.7 kg

DRUGS (8)
  1. CEROCRAL [Concomitant]
     Active Substance: IFENPRODIL
     Dosage: 10 MG, TID
     Route: 048
  2. MOHRUS [Concomitant]
     Active Substance: KETOPROFEN
     Dosage: UNK
     Route: 062
  3. TAKEPRON CAPSULES 15 [Suspect]
     Active Substance: LANSOPRAZOLE
     Indication: GASTROOESOPHAGEAL REFLUX DISEASE
     Dosage: 15 MG, UNK
     Route: 048
  4. JUVELA N [Concomitant]
     Active Substance: TOCOPHERYL NICOTINATE, D-.ALPHA.
     Dosage: 100 MG, TID
     Route: 048
  5. FLUITRAN [Concomitant]
     Active Substance: TRICHLORMETHIAZIDE
     Dosage: 2 MG, QD
     Route: 048
  6. HYALEIN [Concomitant]
     Active Substance: HYALURONATE SODIUM
     Dosage: UNK
     Route: 047
  7. NIFLAN [Concomitant]
     Dosage: UNK
     Route: 047
  8. NITOROL R [Concomitant]
     Dosage: 20 MG, QD
     Route: 048

REACTIONS (1)
  - Atypical fracture [Recovered/Resolved with Sequelae]

NARRATIVE: CASE EVENT DATE: 20150621
